FAERS Safety Report 7261824-9 (Version None)
Quarter: 2011Q1

REPORT INFORMATION
  Report Type: 
  Country: None (occurrence: None)
  Receive Date: 20110130
  Receipt Date: 20101230
  Transmission Date: 20110831
  Serious: No
  Sender: FDA-Public Use
  Company Number: US-ABBOTT-10P-163-0690816-00

PATIENT
  Age: 27 Year
  Sex: Female

DRUGS (6)
  1. VICODIN [Concomitant]
     Dosage: 7.5/750MG
     Route: 048
  2. HUMIRA [Suspect]
     Indication: PSORIATIC ARTHROPATHY
     Dates: start: 20100805
  3. HUMIRA [Suspect]
     Dates: start: 20101118
  4. XANAX [Concomitant]
     Indication: ANXIETY
     Route: 048
  5. ALBUTEROL [Concomitant]
     Indication: ASTHMA
     Route: 055
  6. VICODIN [Suspect]
     Indication: PAIN

REACTIONS (10)
  - FEELING HOT [None]
  - ANXIETY [None]
  - PAIN IN EXTREMITY [None]
  - PANIC ATTACK [None]
  - NERVOUSNESS [None]
  - PSORIATIC ARTHROPATHY [None]
  - BACK PAIN [None]
  - TREMOR [None]
  - ARTHRALGIA [None]
  - DRUG INEFFECTIVE [None]
